FAERS Safety Report 6929282-9 (Version None)
Quarter: 2010Q3

REPORT INFORMATION
  Report Type: 
  Country: None (occurrence: None)
  Receive Date: 20100817
  Receipt Date: 20100611
  Transmission Date: 20110219
  Serious: No
  Sender: FDA-Public Use
  Company Number: US-ALLERGAN-1007655US

PATIENT
  Sex: Male

DRUGS (1)
  1. ACUVAIL [Suspect]
     Indication: EYE PAIN
     Dosage: UNK
     Route: 047

REACTIONS (1)
  - EYE IRRITATION [None]
